FAERS Safety Report 24580973 (Version 7)
Quarter: 2024Q4

REPORT INFORMATION
  Report Type: Spontaneous
  Country: US (occurrence: US)
  Receive Date: 20241105
  Receipt Date: 20241230
  Transmission Date: 20250115
  Serious: Yes (Other)
  Sender: PFIZER
  Company Number: US-PFIZER INC-202400293240

PATIENT
  Age: 67 Year
  Sex: Female

DRUGS (13)
  1. IBRANCE [Suspect]
     Active Substance: PALBOCICLIB
     Dosage: DAILY X 21 DAYS, THEN 7 DAYS OFF
  2. IBRANCE [Suspect]
     Active Substance: PALBOCICLIB
     Dosage: TAKE DAILY FOR 21 DAYS THEN 7 DAYS OFF
     Route: 048
     Dates: start: 20241024, end: 20241122
  3. IBRANCE [Suspect]
     Active Substance: PALBOCICLIB
     Dosage: 125MG DAILY X 21 DAYS, THEN OFF 7 DAYS
     Route: 048
     Dates: start: 20241204
  4. IBRANCE [Suspect]
     Active Substance: PALBOCICLIB
     Dosage: TAKE 1 (125MG) BY MOUTH DAILY X 21 DAYS, THEN OFF 7 DAYS
     Route: 048
     Dates: start: 20241024
  5. ANASTROZOLE [Concomitant]
     Active Substance: ANASTROZOLE
     Dosage: UNK
  6. AROMASIN [Concomitant]
     Active Substance: EXEMESTANE
     Dosage: UNK
  7. ASPIRIN [Concomitant]
     Active Substance: ASPIRIN
     Dosage: UNK (LOW DOSE)
  8. AZELASTINE [Concomitant]
     Active Substance: AZELASTINE
     Dosage: UNK (137 MCG) 200 SP
     Route: 045
  9. FLUOXETINE [Concomitant]
     Active Substance: FLUOXETINE HYDROCHLORIDE
     Dosage: UNK
  10. FLUTICASONE [Concomitant]
     Active Substance: FLUTICASONE
     Dosage: UNK (120) RX
     Route: 045
  11. GABAPENTIN [Concomitant]
     Active Substance: GABAPENTIN
     Dosage: UNK
  12. PANTOPRAZOLE [Concomitant]
     Active Substance: PANTOPRAZOLE
     Dosage: UNK
  13. TRAZODONE [Concomitant]
     Active Substance: TRAZODONE HYDROCHLORIDE
     Dosage: UNK

REACTIONS (6)
  - Neutropenia [Recovered/Resolved]
  - Alopecia [Not Recovered/Not Resolved]
  - Headache [Not Recovered/Not Resolved]
  - Fluid imbalance [Unknown]
  - Stomatitis [Not Recovered/Not Resolved]
  - Off label use [Unknown]

NARRATIVE: CASE EVENT DATE: 20241101
